FAERS Safety Report 7013203-7 (Version None)
Quarter: 2010Q3

REPORT INFORMATION
  Report Type: 
  Country: None (occurrence: None)
  Receive Date: 20100924
  Receipt Date: 20100917
  Transmission Date: 20110219
  Serious: Yes (Hospitalization)
  Sender: FDA-Public Use
  Company Number: US-US-EMD SERONO, INC.-7018270

PATIENT
  Sex: Female
  Weight: 68 kg

DRUGS (7)
  1. REBIF [Suspect]
     Indication: MULTIPLE SCLEROSIS
     Route: 058
     Dates: start: 20020626, end: 20090101
  2. REBIF [Suspect]
     Dates: start: 20090501
  3. METOPROLOL TARTRATE [Concomitant]
     Indication: HYPERTENSION
  4. POTASSIUM [Concomitant]
     Indication: HYPERTENSION
  5. LISINOPRIL [Concomitant]
     Indication: HYPERTENSION
  6. SIMVASTATIN [Concomitant]
     Indication: BLOOD CHOLESTEROL INCREASED
  7. CRESTOR [Concomitant]
     Indication: BLOOD CHOLESTEROL INCREASED

REACTIONS (4)
  - CORONARY ARTERY OCCLUSION [None]
  - MEMORY IMPAIRMENT [None]
  - MYOCARDIAL INFARCTION [None]
  - SCAR [None]
